FAERS Safety Report 6911921-X (Version None)
Quarter: 2010Q3

REPORT INFORMATION
  Report Type: 
  Country: None (occurrence: None)
  Receive Date: 20100806
  Receipt Date: 20071213
  Transmission Date: 20110219
  Serious: No
  Sender: FDA-Public Use
  Company Number: US-PFIZER INC-2007086062

PATIENT
  Sex: Female
  Weight: 60 kg

DRUGS (4)
  1. DETROL LA [Suspect]
     Indication: URINARY INCONTINENCE
  2. CLONAZEPAM [Concomitant]
  3. PROVIGIL [Concomitant]
  4. ALPRAZOLAM [Concomitant]

REACTIONS (1)
  - DRUG INEFFECTIVE [None]
